FAERS Safety Report 14152995 (Version 2)
Quarter: 2017Q4

REPORT INFORMATION
  Report Type: Spontaneous
  Country: FR (occurrence: FR)
  Receive Date: 20171102
  Receipt Date: 20171208
  Transmission Date: 20180321
  Serious: Yes (Other)
  Sender: FDA-Public Use
  Company Number: FR-BAXTER-2017BAX036385

PATIENT

DRUGS (1)
  1. EAU POUR PREPARATIONS INJECTABLES VIAFLO, SOLVANT POUR PR?PARATION PAR [Suspect]
     Active Substance: WATER
     Indication: MECHANICAL VENTILATION
     Route: 055

REACTIONS (6)
  - Device malfunction [Unknown]
  - Poor quality drug administered [Unknown]
  - Wrong drug administered [Unknown]
  - Off label use [Unknown]
  - Device deposit issue [Unknown]
  - Cardio-respiratory arrest neonatal [Recovered/Resolved]
